FAERS Safety Report 14804409 (Version 10)
Quarter: 2019Q1

REPORT INFORMATION
  Report Type: Spontaneous
  Country: GB (occurrence: GB)
  Receive Date: 20180425
  Receipt Date: 20190122
  Transmission Date: 20190417
  Serious: Yes (Life-Threatening, Hospitalization, Other)
  Sender: FDA-Public Use
  Company Number: GB-AUROBINDO-AUR-APL-2018-021470

PATIENT
  Age: 29 Year
  Sex: Female

DRUGS (13)
  1. SEVOFLURANE. [Suspect]
     Active Substance: SEVOFLURANE
     Indication: ASTHMA
     Dosage: 8 PERCENT
     Route: 055
  2. HYDROCORTISONE. [Suspect]
     Active Substance: HYDROCORTISONE
     Indication: ASTHMA
     Dosage: 100 MILLIGRAM
     Route: 042
  3. MAGNESIUM SULFATE. [Suspect]
     Active Substance: MAGNESIUM SULFATE
     Indication: ASTHMA
     Dosage: 2 GRAM
     Route: 042
  4. ATROVENT [Suspect]
     Active Substance: IPRATROPIUM BROMIDE
     Indication: ASTHMA
     Dosage: 0.5 MILLIGRAM, NEBULISATION
     Route: 065
  5. THEOPHYLLINE [Suspect]
     Active Substance: THEOPHYLLINE ANHYDROUS
     Indication: ASTHMA
     Dosage: UNK
     Route: 065
  6. SALBUTAMOL [Suspect]
     Active Substance: ALBUTEROL
     Indication: ASTHMA
     Dosage: 12.3 MILLIGRAM (FORM-INTRAVENOUS INFUSION)
     Route: 042
  7. PREDNISOLONE. [Suspect]
     Active Substance: PREDNISOLONE
     Indication: ASTHMA
     Dosage: 30 MILLIGRAM
     Route: 048
  8. KETAMINE [Suspect]
     Active Substance: KETAMINE
     Indication: ASTHMA
     Dosage: INCREASED TO 45 MICROG/KG/MIN
     Route: 042
  9. SALBUTAMOL [Suspect]
     Active Substance: ALBUTEROL
     Dosage: 250 MICROGRAM, 2 BOLUSES
     Route: 040
  10. SALBUTAMOL [Suspect]
     Active Substance: ALBUTEROL
     Dosage: 15 MILLIGRAM (VIA NEBULIZATION IN REPEATED DOSES)
     Route: 042
  11. SALBUTAMOL [Suspect]
     Active Substance: ALBUTEROL
     Dosage: 0.5 MILLIGRAM
     Route: 042
  12. MONTELUKAST [Suspect]
     Active Substance: MONTELUKAST SODIUM
     Indication: ASTHMA
     Dosage: UNK
     Route: 048
  13. EPINEPHRINE. [Suspect]
     Active Substance: EPINEPHRINE
     Indication: ASTHMA
     Dosage: 350 MICROGRAM (DILUTED IN SMALL INCREMENTS)
     Route: 065

REACTIONS (20)
  - Respiratory acidosis [Recovering/Resolving]
  - Off label use [Unknown]
  - Bronchospasm [Recovered/Resolved]
  - Respiratory rate increased [Recovered/Resolved]
  - Asthma [Recovered/Resolved]
  - Acute respiratory failure [Recovered/Resolved]
  - Hypercapnia [Recovering/Resolving]
  - Blood bicarbonate decreased [Recovering/Resolving]
  - Dyspnoea [Recovering/Resolving]
  - Cyanosis [Recovering/Resolving]
  - Drug ineffective [Recovering/Resolving]
  - Oxygen saturation decreased [Recovered/Resolved]
  - PO2 decreased [Recovering/Resolving]
  - Lung hyperinflation [Recovered/Resolved]
  - Wheezing [Recovered/Resolved]
  - Airway peak pressure increased [Recovering/Resolving]
  - Status asthmaticus [Recovered/Resolved]
  - Blood lactic acid increased [Recovering/Resolving]
  - Blood pH decreased [Recovering/Resolving]
  - PCO2 increased [Recovering/Resolving]
